FAERS Safety Report 21342103 (Version 1)
Quarter: 2022Q3

REPORT INFORMATION
  Report Type: Report from Study
  Country: CL (occurrence: None)
  Receive Date: 20220916
  Receipt Date: 20220916
  Transmission Date: 20221027
  Serious: Yes (Hospitalization, Other)
  Sender: FDA-Public Use
  Company Number: CL-Merck Healthcare KGaA-9350779

PATIENT
  Age: 44 Year
  Sex: Female

DRUGS (1)
  1. REBIF [Suspect]
     Active Substance: INTERFERON BETA-1A
     Indication: Multiple sclerosis
     Route: 058
     Dates: start: 20120801

REACTIONS (10)
  - Gallbladder disorder [Recovering/Resolving]
  - Haemorrhage [Unknown]
  - Anaemia [Unknown]
  - Liver disorder [Unknown]
  - Splenomegaly [Unknown]
  - Iron deficiency [Unknown]
  - Vitamin B complex deficiency [Unknown]
  - Depression [Unknown]
  - Sleep disorder [Unknown]
  - Product administration interrupted [Unknown]

NARRATIVE: CASE EVENT DATE: 20220629
